FAERS Safety Report 8851233 (Version 1)
Quarter: 2012Q4

REPORT INFORMATION
  Report Type: 
  Country: US (occurrence: US)
  Receive Date: 20121019
  Receipt Date: 20121019
  Transmission Date: 20130627
  Serious: No
  Sender: FDA-Public Use
  Company Number: US-VERTEX PHARMACEUTICAL INC.-2012-022907

PATIENT
  Sex: Male

DRUGS (6)
  1. INCIVEK [Suspect]
     Indication: HEPATITIS C
     Dosage: UNK
     Route: 048
  2. RIBAVIRIN [Suspect]
     Indication: HEPATITIS C
     Dosage: 800 mg, qd
     Route: 048
  3. RIBAVIRIN [Suspect]
     Dosage: 600 mg, qd
     Route: 048
  4. RIBAVIRIN [Suspect]
     Dosage: 400 mg, qd
     Route: 048
  5. PEGASYS [Suspect]
     Indication: HEPATITIS C
     Dosage: 180 ?g, UNK
  6. PEGASYS [Suspect]
     Dosage: 145 ?g, UNK

REACTIONS (1)
  - Anaemia [Not Recovered/Not Resolved]
